FAERS Safety Report 7777630-2 (Version None)
Quarter: 2011Q3

REPORT INFORMATION
  Report Type: 
  Country: None (occurrence: None)
  Receive Date: 20110926
  Receipt Date: 20110919
  Transmission Date: 20111222
  Serious: Yes (Other)
  Sender: FDA-Public Use
  Company Number: US-AMGEN-USASP2011048334

PATIENT
  Age: 50 Year
  Sex: Female

DRUGS (1)
  1. ENBREL [Suspect]
     Indication: ANKYLOSING SPONDYLITIS
     Dosage: 50 MG, QWK
     Dates: start: 20090708, end: 20110501

REACTIONS (4)
  - SINUSITIS [None]
  - MUSCULOSKELETAL DISCOMFORT [None]
  - NEPHROLITHIASIS [None]
  - NASOPHARYNGITIS [None]
